FAERS Safety Report 9735794 (Version 2)
Quarter: 2013Q4

REPORT INFORMATION
  Report Type: Spontaneous
  Country: US (occurrence: US)
  Receive Date: 20131206
  Receipt Date: 20131206
  Transmission Date: 20140711
  Serious: No
  Sender: FDA-Public Use
  Company Number: US-GILEAD-2009-0022673

PATIENT
  Sex: Female

DRUGS (9)
  1. LETAIRIS [Suspect]
     Indication: PULMONARY ARTERIAL HYPERTENSION
     Route: 048
     Dates: start: 20080724
  2. NORVASC [Concomitant]
  3. LISINOPRIL [Concomitant]
  4. PRAVASTATIN SODIUM [Concomitant]
  5. ADULT ASPIRIN [Concomitant]
  6. IBUPROFEN [Concomitant]
  7. METHOTREXATE [Concomitant]
  8. ZANTAC [Concomitant]
  9. ESTER-C [Concomitant]

REACTIONS (1)
  - Liver function test abnormal [Unknown]
